FAERS Safety Report 11078150 (Version 1)
Quarter: 2015Q2

REPORT INFORMATION
  Report Type: Spontaneous
  Country: US (occurrence: None)
  Receive Date: 20150429
  Receipt Date: 20150429
  Transmission Date: 20150821
  Serious: Yes (Hospitalization, Other)
  Sender: FDA-Public Use
  Company Number: None

PATIENT
  Age: 31 Year
  Sex: Female
  Weight: 58.97 kg

DRUGS (4)
  1. FLAX OIL [Concomitant]
  2. VITAMIN D [Concomitant]
     Active Substance: CHOLECALCIFEROL
  3. VITAMIN C [Concomitant]
     Active Substance: ASCORBIC ACID
  4. YAZ [Suspect]
     Active Substance: DROSPIRENONE\ETHINYL ESTRADIOL
     Indication: CONTRACEPTION
     Dosage: 1 PILL PER DAY
     Route: 048

REACTIONS (20)
  - Depression [None]
  - Arthropathy [None]
  - Synovial disorder [None]
  - Lymphadenopathy [None]
  - Eye discharge [None]
  - Fluid imbalance [None]
  - Sensory disturbance [None]
  - Soft tissue disorder [None]
  - Ligament disorder [None]
  - Eye disorder [None]
  - Feeling abnormal [None]
  - Conjunctivochalasis [None]
  - Cerebral disorder [None]
  - Vitreous floaters [None]
  - Fatigue [None]
  - Mucous membrane disorder [None]
  - Visual impairment [None]
  - Pain [None]
  - Dehydration [None]
  - Skin disorder [None]
